FAERS Safety Report 4576966-6 (Version None)
Quarter: 2005Q1

REPORT INFORMATION
  Report Type: 
  Country: None (occurrence: None)
  Receive Date: 20050127
  Receipt Date: 20050127
  Transmission Date: 20050727
  Serious: Yes (Other)
  Sender: FDA-Public Use
  Company Number: None

PATIENT
  Age: 54 Year
  Sex: Female
  Weight: 104.3273 kg

DRUGS (2)
  1. WELLBUTRIN SR [Suspect]
     Indication: DEPRESSION
     Dosage: 100 MG 1 DAILY
     Dates: start: 20030805
  2. WELLBUTRIN SR [Suspect]
     Dosage: 150 MG 1 DAILY
     Dates: start: 20040830, end: 20040201

REACTIONS (8)
  - ASTHENIA [None]
  - CEREBROVASCULAR ACCIDENT [None]
  - CONFUSIONAL STATE [None]
  - DYSGEUSIA [None]
  - FEELING ABNORMAL [None]
  - PARTIAL SEIZURES [None]
  - SENSORY DISTURBANCE [None]
  - VISUAL DISTURBANCE [None]
